FAERS Safety Report 6572507-2 (Version None)
Quarter: 2010Q1

REPORT INFORMATION
  Report Type: 
  Country: None (occurrence: None)
  Receive Date: 20100205
  Receipt Date: 20100128
  Transmission Date: 20100710
  Serious: Yes (Other)
  Sender: FDA-Public Use
  Company Number: JP-MERCK-1002USA00394

PATIENT
  Age: 53 Year
  Sex: Male

DRUGS (14)
  1. EMEND [Suspect]
     Indication: PROPHYLAXIS OF NAUSEA AND VOMITING
     Route: 048
     Dates: start: 20100107, end: 20100107
  2. EMEND [Suspect]
     Route: 048
     Dates: start: 20100108, end: 20100109
  3. CETUXIMAB [Suspect]
     Route: 041
  4. KYTRIL [Concomitant]
     Route: 065
  5. DECADRON [Concomitant]
     Route: 065
  6. NAUZELIN [Concomitant]
     Route: 065
  7. GASMOTIN [Concomitant]
     Route: 065
  8. MAGNESIUM OXIDE [Concomitant]
     Route: 065
  9. CHLOR-TRIMETON [Concomitant]
     Route: 065
  10. ATROPINE [Concomitant]
     Route: 065
  11. CONCLYTE MG [Concomitant]
     Route: 065
  12. MYSER [Concomitant]
     Route: 065
  13. SAHNE [Concomitant]
     Route: 065
  14. TOPOTECAN [Concomitant]
     Route: 065

REACTIONS (1)
  - SKIN DISORDER [None]
